FAERS Safety Report 23074541 (Version 1)
Quarter: 2023Q4

REPORT INFORMATION
  Report Type: Spontaneous
  Country: FR (occurrence: FR)
  Receive Date: 20231017
  Receipt Date: 20231017
  Transmission Date: 20240110
  Serious: Yes (Hospitalization)
  Sender: FDA-Public Use
  Company Number: None

PATIENT
  Age: 71 Year
  Sex: Male
  Weight: 71 kg

DRUGS (3)
  1. VORICONAZOLE [Suspect]
     Active Substance: VORICONAZOLE
     Indication: Bronchopulmonary aspergillosis
     Dosage: 400 MILLIGRAM, BID
     Route: 048
     Dates: start: 20230627, end: 20230828
  2. VORICONAZOLE [Suspect]
     Active Substance: VORICONAZOLE
     Dosage: 250 MILLIGRAM, BID
     Route: 048
     Dates: start: 20230628, end: 20230821
  3. VORICONAZOLE [Suspect]
     Active Substance: VORICONAZOLE
     Dosage: 300 MILLIGRAM, BID
     Route: 048
     Dates: start: 20230822, end: 20230828

REACTIONS (2)
  - Photosensitivity reaction [Recovering/Resolving]
  - Product monitoring error [Recovering/Resolving]

NARRATIVE: CASE EVENT DATE: 20230701
